FAERS Safety Report 19514964 (Version 1)
Quarter: 2021Q3

REPORT INFORMATION
  Report Type: Spontaneous
  Country: FR (occurrence: FR)
  Receive Date: 20210709
  Receipt Date: 20210709
  Transmission Date: 20211014
  Serious: Yes (Other)
  Sender: FDA-Public Use
  Company Number: FR-GLAXOSMITHKLINE-FR2021148241

PATIENT
  Age: 56 Year
  Sex: Female
  Weight: 56 kg

DRUGS (5)
  1. TENOFOVIR [Suspect]
     Active Substance: TENOFOVIR
     Indication: HIV INFECTION
     Dosage: UNK
     Route: 065
     Dates: start: 200105, end: 2002
  2. EFAVIRENZ. [Suspect]
     Active Substance: EFAVIRENZ
     Indication: HIV INFECTION
     Dosage: UNK
     Route: 065
     Dates: start: 202105
  3. FENOFIBRATE. [Concomitant]
     Active Substance: FENOFIBRATE
     Indication: DYSLIPIDAEMIA
     Dosage: UNK
     Route: 065
  4. LAMIVUDINE HIV [Suspect]
     Active Substance: LAMIVUDINE
     Indication: HIV INFECTION
     Dosage: UNK
     Route: 065
     Dates: start: 200105
  5. LOPINAVIR+RITONAVIR [Suspect]
     Active Substance: LOPINAVIR\RITONAVIR
     Indication: HIV INFECTION
     Dosage: UNK
     Route: 048
     Dates: start: 200105

REACTIONS (8)
  - Nephropathy toxic [Recovered/Resolved]
  - Hypophosphataemia [Recovered/Resolved]
  - Pain in extremity [Recovered/Resolved]
  - Renal tubular dysfunction [Recovered/Resolved]
  - Proteinuria [Recovered/Resolved]
  - Creatinine renal clearance decreased [Recovered/Resolved]
  - Myalgia [Recovered/Resolved]
  - Glycosuria [Recovered/Resolved]

NARRATIVE: CASE EVENT DATE: 200203
